FAERS Safety Report 24055963 (Version 1)
Quarter: 2024Q3

REPORT INFORMATION
  Report Type: Report from Study
  Country: US (occurrence: None)
  Receive Date: 20240705
  Receipt Date: 20240705
  Transmission Date: 20241016
  Serious: Yes (Other)
  Sender: ASTRAZENECA
  Company Number: 2024A145116

PATIENT
  Age: 83 Year
  Sex: Female
  Weight: 76.1 kg

DRUGS (3)
  1. TRUQAP [Suspect]
     Active Substance: CAPIVASERTIB
     Indication: Breast cancer female
     Route: 048
     Dates: start: 20240118
  2. TRUQAP [Suspect]
     Active Substance: CAPIVASERTIB
     Indication: Breast cancer female
     Route: 048
     Dates: start: 20240118
  3. FASLODEX [Suspect]
     Active Substance: FULVESTRANT
     Route: 030

REACTIONS (6)
  - Metastases to bone marrow [Unknown]
  - Neuropathy peripheral [Unknown]
  - Platelet count abnormal [Unknown]
  - Asthenia [Unknown]
  - Decreased activity [Unknown]
  - Blood glucose abnormal [Unknown]
